FAERS Safety Report 7390076-4 (Version None)
Quarter: 2011Q2

REPORT INFORMATION
  Report Type: 
  Country: None (occurrence: None)
  Receive Date: 20110401
  Receipt Date: 20110330
  Transmission Date: 20111010
  Serious: Yes (Other)
  Sender: FDA-Public Use
  Company Number: CN-PFIZER INC-2011063541

PATIENT
  Age: 75 Year
  Sex: Male

DRUGS (4)
  1. LOSARTAN [Concomitant]
     Dosage: 25 MG, 1X/DAY
     Route: 048
  2. SIMVASTATIN [Concomitant]
     Dosage: 40 MG, 1X/DAY QN
     Dates: end: 20040701
  3. LIPITOR [Suspect]
     Indication: ATHEROSCLEROSIS PROPHYLAXIS
     Dosage: 20 MG, 1X/DAY QN
     Route: 048
     Dates: start: 20040703, end: 20040705
  4. DIFORMIN [Concomitant]
     Dosage: 500 MG, 2X/DAY
     Route: 048

REACTIONS (3)
  - RHABDOMYOLYSIS [None]
  - BLOOD CREATINE PHOSPHOKINASE MB INCREASED [None]
  - TROPONIN I INCREASED [None]
